FAERS Safety Report 5508013-3 (Version None)
Quarter: 2007Q4

REPORT INFORMATION
  Report Type: 
  Country: None (occurrence: None)
  Receive Date: 20071106
  Receipt Date: 20071024
  Transmission Date: 20080405
  Serious: Yes (Other)
  Sender: FDA-Public Use
  Company Number: US-PFIZER INC-2007080770

PATIENT
  Sex: Female
  Weight: 51 kg

DRUGS (19)
  1. CHANTIX [Suspect]
     Indication: SMOKING CESSATION THERAPY
     Route: 048
     Dates: start: 20070701, end: 20070921
  2. LEXAPRO [Concomitant]
  3. XANAX [Concomitant]
  4. ATENOLOL [Concomitant]
  5. LISINOPRIL [Concomitant]
  6. IMDUR [Concomitant]
  7. RESTORIL [Concomitant]
  8. VYTORIN [Concomitant]
  9. SPIRIVA [Concomitant]
  10. ALBUTEROL [Concomitant]
  11. PLAVIX [Concomitant]
  12. ACETYLSALICYLIC ACID SRT [Concomitant]
  13. DOCUSATE SODIUM [Concomitant]
  14. FLEXERIL [Concomitant]
  15. OXYIR [Concomitant]
  16. METOCLOPRAMIDE [Concomitant]
  17. FENTANYL [Concomitant]
  18. RANITIDINE [Concomitant]
  19. BENADRYL [Concomitant]

REACTIONS (17)
  - AGITATION [None]
  - AMNESIA [None]
  - ANAEMIA [None]
  - ANXIETY [None]
  - CONFUSIONAL STATE [None]
  - DEPRESSION [None]
  - DYSKINESIA [None]
  - EMOTIONAL DISORDER [None]
  - HALLUCINATION, AUDITORY [None]
  - HALLUCINATION, VISUAL [None]
  - INSOMNIA [None]
  - LYMPHADENOPATHY [None]
  - MANIA [None]
  - SLEEP TALKING [None]
  - SOMNAMBULISM [None]
  - STRESS [None]
  - THINKING ABNORMAL [None]
